FAERS Safety Report 10125880 (Version 1)
Quarter: 2014Q2

REPORT INFORMATION
  Report Type: Report from Study
  Country: TR (occurrence: TR)
  Receive Date: 20140427
  Receipt Date: 20140427
  Transmission Date: 20141212
  Serious: Yes (Hospitalization)
  Sender: FDA-Public Use
  Company Number: TR-US-EMD SERONO, INC.-7284849

PATIENT
  Age: 25 Year
  Sex: Female
  Weight: 56 kg

DRUGS (2)
  1. REBIF [Suspect]
     Indication: MULTIPLE SCLEROSIS
  2. BRUFEN                             /00109201/ [Suspect]
     Indication: ANALGESIC THERAPY

REACTIONS (3)
  - Multiple sclerosis relapse [Not Recovered/Not Resolved]
  - Ingrown hair [Unknown]
  - Injection site bruising [Not Recovered/Not Resolved]
